FAERS Safety Report 8451536-8 (Version None)
Quarter: 2012Q2

REPORT INFORMATION
  Report Type: 
  Country: None (occurrence: None)
  Receive Date: 20120620
  Receipt Date: 20120404
  Transmission Date: 20120825
  Serious: No
  Sender: FDA-Public Use
  Company Number: US-VERTEX PHARMACEUTICALS INC.-AE-2012-003249

PATIENT
  Sex: Male
  Weight: 84.898 kg

DRUGS (4)
  1. RIBASPHERE [Concomitant]
     Indication: HEPATITIS C
     Dates: start: 20120222
  2. PEGASYS [Concomitant]
     Indication: HEPATITIS C
     Dates: start: 20120222
  3. NADOLOL [Concomitant]
  4. INCIVEK [Suspect]
     Indication: HEPATITIS C
     Route: 048
     Dates: start: 20120222

REACTIONS (3)
  - PRURITUS GENERALISED [None]
  - RASH PRURITIC [None]
  - HAEMOGLOBIN DECREASED [None]
